FAERS Safety Report 10395251 (Version 1)
Quarter: 2014Q3

REPORT INFORMATION
  Report Type: Report from Study
  Country: US (occurrence: US)
  Receive Date: 20140820
  Receipt Date: 20140820
  Transmission Date: 20150326
  Serious: Yes (Hospitalization, Other)
  Sender: FDA-Public Use
  Company Number: PHHY2014US100532

PATIENT
  Age: 29 Year
  Sex: Female

DRUGS (33)
  1. MYFORTIC [Suspect]
     Active Substance: MYCOPHENOLATE SODIUM
     Indication: RENAL TRANSPLANT
  2. DIPHENHYDRAMINE [Concomitant]
     Active Substance: DIPHENHYDRAMINE
     Dosage: UNK UKN, UNK
  3. PREDNISONE. [Concomitant]
     Active Substance: PREDNISONE
     Indication: RENAL TRANSPLANT
  4. CIPROFLOXACIN. [Concomitant]
     Active Substance: CIPROFLOXACIN
     Dosage: UNK UKN, UNK
  5. CLONIDINE. [Concomitant]
     Active Substance: CLONIDINE
     Dosage: UNK UKN, UNK
  6. CLOTRIMAZOLE. [Concomitant]
     Active Substance: CLOTRIMAZOLE
     Dosage: UNK UKN, UNK
  7. DAPSONE. [Concomitant]
     Active Substance: DAPSONE
     Dosage: UNK UKN, UNK
  8. DOCUSATE [Concomitant]
     Active Substance: DOCUSATE
     Dosage: UNK UKN, UNK
  9. LABETALOL [Concomitant]
     Active Substance: LABETALOL\LABETALOL HYDROCHLORIDE
     Dosage: UNK UKN, UNK
  10. METHYLPREDNISOLONE [Concomitant]
     Active Substance: METHYLPREDNISOLONE
     Indication: RENAL TRANSPLANT
  11. MYFORTIC [Suspect]
     Active Substance: MYCOPHENOLATE SODIUM
     Indication: IMMUNOSUPPRESSION
     Dosage: UNK UKN, UNK
  12. ACETAMINOPHEN W/OXYCODONE [Concomitant]
     Active Substance: ACETAMINOPHEN\OXYCODONE HYDROCHLORIDE
     Dosage: UNK UKN, UNK
  13. CLONIDINE. [Concomitant]
     Active Substance: CLONIDINE
     Dosage: UNK UKN, UNK (INCREASED TO THREE TIMES DAILY)
  14. NIFEDIPINE. [Concomitant]
     Active Substance: NIFEDIPINE
     Dosage: UNK UKN, UNK
  15. TACROLIMUS. [Concomitant]
     Active Substance: TACROLIMUS
     Indication: IMMUNOSUPPRESSION
     Dosage: UNK UKN, UNK
  16. SERTRALINE [Concomitant]
     Active Substance: SERTRALINE HYDROCHLORIDE
     Dosage: UNK UKN, UNK
  17. CELLCEPT [Concomitant]
     Active Substance: MYCOPHENOLATE MOFETIL\MYCOPHENOLATE MOFETIL HYDROCHLORIDE
     Dosage: UNK UKN, UNK (REINTRODUCED AND IICREASED TO THE FULL DOSE)
  18. FUROSEMIDE. [Concomitant]
     Active Substance: FUROSEMIDE
     Dosage: UNK UKN, UNK
  19. SIMETHICONE [Concomitant]
     Active Substance: DIMETHICONE\SILICON DIOXIDE\SIMETHICONE
     Dosage: UNK UKN, UNK
  20. PREDNISONE. [Concomitant]
     Active Substance: PREDNISONE
     Indication: IMMUNOSUPPRESSION
     Dosage: UNK UKN, UNK
  21. ACETAMINOPHEN. [Concomitant]
     Active Substance: ACETAMINOPHEN
     Dosage: UNK UKN, UNK
  22. CARVEDILOL. [Concomitant]
     Active Substance: CARVEDILOL
     Dosage: UNK UKN, UNK
  23. CLINDAMYCIN [Concomitant]
     Active Substance: CLINDAMYCIN\CLINDAMYCIN PHOSPHATE
     Dosage: UNK UKN, UNK
  24. PANTOPRAZOLE [Concomitant]
     Active Substance: PANTOPRAZOLE SODIUM
     Dosage: UNK UKN, UNK
  25. SENNA [Concomitant]
     Active Substance: SENNA LEAF\SENNOSIDES\SENNOSIDES A AND B
     Dosage: UNK UKN, UNK
  26. VALGANCICLOVIR [Concomitant]
     Active Substance: VALGANCICLOVIR
     Dosage: UNK UKN, UNK
  27. ANTITHYMOCYTE IMMUNOGLOBULIN [Concomitant]
     Active Substance: THYMOCYTE IMMUNE GLOBULIN NOS
     Indication: IMMUNOSUPPRESSION
     Dosage: UNK UKN, UNK
  28. ANTITHYMOCYTE IMMUNOGLOBULIN [Concomitant]
     Active Substance: THYMOCYTE IMMUNE GLOBULIN NOS
     Indication: RENAL TRANSPLANT
  29. METHYLPREDNISOLONE [Concomitant]
     Active Substance: METHYLPREDNISOLONE
     Indication: IMMUNOSUPPRESSION
     Dosage: UNK UKN, UNK
  30. CELLCEPT [Concomitant]
     Active Substance: MYCOPHENOLATE MOFETIL\MYCOPHENOLATE MOFETIL HYDROCHLORIDE
     Dosage: UNK UKN, UNK
  31. HYDROMORPHONE [Concomitant]
     Active Substance: HYDROMORPHONE
     Dosage: UNK UKN, UNK
  32. INSULIN ASPART [Concomitant]
     Active Substance: INSULIN ASPART
     Dosage: UNK HIGH DOSE
  33. TACROLIMUS. [Concomitant]
     Active Substance: TACROLIMUS
     Indication: RENAL TRANSPLANT

REACTIONS (34)
  - Nausea [Unknown]
  - Decreased appetite [Unknown]
  - Diarrhoea [Unknown]
  - Haematemesis [Unknown]
  - Renal tubular atrophy [Unknown]
  - Flank pain [Unknown]
  - Constipation [Unknown]
  - Hiatus hernia [Unknown]
  - Hypokalaemia [Unknown]
  - Renal failure [Unknown]
  - Gastritis [Recovered/Resolved]
  - Abdominal distension [Unknown]
  - Clostridium test positive [Unknown]
  - Vomiting [Unknown]
  - Abdominal pain lower [Recovering/Resolving]
  - Small intestinal obstruction [Recovered/Resolved]
  - Abdominal pain upper [Unknown]
  - Pyrexia [Unknown]
  - Blood glucose increased [Unknown]
  - Urine output decreased [Unknown]
  - Gastrooesophageal reflux disease [Unknown]
  - Hypocalcaemia [Unknown]
  - Seroma [Unknown]
  - Failure to thrive [Recovered/Resolved]
  - Hypertension [Recovered/Resolved]
  - Urinary tract infection [Recovered/Resolved]
  - Headache [Unknown]
  - Kidney fibrosis [Unknown]
  - Complications of transplanted kidney [Recovered/Resolved]
  - Haematoma [Recovered/Resolved]
  - Malaise [Unknown]
  - Gastritis erosive [Unknown]
  - Vitamin D deficiency [Unknown]
  - Pain [Unknown]

NARRATIVE: CASE EVENT DATE: 20110703
